FAERS Safety Report 6564689-3 (Version None)
Quarter: 2010Q1

REPORT INFORMATION
  Report Type: 
  Country: None (occurrence: None)
  Receive Date: 20100201
  Receipt Date: 20100119
  Transmission Date: 20100710
  Serious: Yes (Hospitalization, Other)
  Sender: FDA-Public Use
  Company Number: US-JNJFOC-20100108389

PATIENT
  Age: 60 Year
  Sex: Female

DRUGS (2)
  1. INFLIXIMAB [Suspect]
     Indication: CROHN'S DISEASE
     Dosage: 7 MONTHS DURATION OF TREATMENT
     Route: 042
  2. MERCAPTOPURINE [Concomitant]

REACTIONS (5)
  - ACUTE RESPIRATORY DISTRESS SYNDROME [None]
  - HISTIOCYTOSIS HAEMATOPHAGIC [None]
  - HISTOPLASMOSIS DISSEMINATED [None]
  - IMMUNE RECONSTITUTION SYNDROME [None]
  - SEPTIC SHOCK [None]
